FAERS Safety Report 21012557 (Version 8)
Quarter: 2023Q1

REPORT INFORMATION
  Report Type: Report from Study
  Country: US (occurrence: US)
  Receive Date: 20220627
  Receipt Date: 20230110
  Transmission Date: 20230418
  Serious: No
  Sender: FDA-Public Use
  Company Number: US-NOVARTISTESTPH-NVSC2022US145498

PATIENT
  Sex: Male

DRUGS (2)
  1. ENTRESTO [Suspect]
     Active Substance: SACUBITRIL\VALSARTAN
     Indication: Cardiac failure chronic
     Dosage: 1 DOSAGE FORM, BID
     Route: 048
     Dates: start: 202206
  2. ENTRESTO [Suspect]
     Active Substance: SACUBITRIL\VALSARTAN
     Dosage: 1.5 DOSAGE FORM (24/26 MG 1/2 TAB QAM, 1 TAB QHS)
     Route: 048

REACTIONS (12)
  - Somnolence [Recovering/Resolving]
  - Seasonal allergy [Unknown]
  - Tachyphrenia [Unknown]
  - Abdominal distension [Unknown]
  - Gout [Unknown]
  - Myalgia [Unknown]
  - Fatigue [Recovering/Resolving]
  - Cough [Unknown]
  - Ejection fraction abnormal [Unknown]
  - Skin discolouration [Recovering/Resolving]
  - Prescribed underdose [Unknown]
  - Wrong technique in product usage process [Unknown]
